FAERS Safety Report 5261260-0 (Version None)
Quarter: 2007Q1

REPORT INFORMATION
  Report Type: 
  Country: None (occurrence: None)
  Receive Date: 20070309
  Receipt Date: 20070227
  Transmission Date: 20070707
  Serious: Yes (Other)
  Sender: FDA-Public Use
  Company Number: US-PFIZER INC-2007016299

PATIENT
  Sex: Male

DRUGS (2)
  1. CHANTIX [Suspect]
  2. ASPIRIN [Concomitant]

REACTIONS (1)
  - VENTRICULAR EXTRASYSTOLES [None]
